FAERS Safety Report 17537886 (Version 1)
Quarter: 2020Q1

REPORT INFORMATION
  Report Type: Spontaneous
  Country: US (occurrence: US)
  Receive Date: 20200312
  Receipt Date: 20200312
  Transmission Date: 20200409
  Serious: No
  Sender: FDA-Public Use
  Company Number: None

PATIENT
  Age: 12 Year
  Sex: Female

DRUGS (2)
  1. MONTELUKAST [Suspect]
     Active Substance: MONTELUKAST SODIUM
     Indication: ASTHMA
     Dosage: ?          QUANTITY:1 TABLET(S);?
     Route: 048
  2. MONTELUKAST [Suspect]
     Active Substance: MONTELUKAST SODIUM
     Indication: MULTIPLE ALLERGIES
     Dosage: ?          QUANTITY:1 TABLET(S);?
     Route: 048

REACTIONS (15)
  - Depression [None]
  - Fatigue [None]
  - Urticaria [None]
  - Hypoaesthesia [None]
  - Paraesthesia [None]
  - Abdominal pain upper [None]
  - Vomiting [None]
  - Poor quality sleep [None]
  - General physical health deterioration [None]
  - Feeling abnormal [None]
  - Anxiety [None]
  - Suicidal ideation [None]
  - Pain [None]
  - Oedema peripheral [None]
  - Mental disorder [None]

NARRATIVE: CASE EVENT DATE: 20180903
